FAERS Safety Report 4785488-9 (Version None)
Quarter: 2005Q3

REPORT INFORMATION
  Report Type: 
  Country: None (occurrence: None)
  Receive Date: 20050929
  Receipt Date: 20050916
  Transmission Date: 20060218
  Serious: Yes (Death, Hospitalization)
  Sender: FDA-Public Use
  Company Number: 02100-JPN-05-0456

PATIENT
  Sex: Female

DRUGS (1)
  1. CILOSTAZOL [Suspect]
     Indication: PERIPHERAL COLDNESS
     Dosage: 100 MG, ORAL
     Route: 048

REACTIONS (1)
  - HAEMORRHAGE [None]
